FAERS Safety Report 8923574 (Version 1)
Quarter: 2012Q4

REPORT INFORMATION
  Report Type: 
  Country: NL (occurrence: NL)
  Receive Date: 20121123
  Receipt Date: 20121123
  Transmission Date: 20130627
  Serious: Yes (Death)
  Sender: FDA-Public Use
  Company Number: PHHY2012NL096920

PATIENT
  Age: 79 Year
  Sex: Male

DRUGS (10)
  1. ZOMETA [Suspect]
     Indication: LUNG CANCER METASTATIC
     Dosage: 4mg/100ml, once per 28 days
  2. ZOMETA [Suspect]
     Dosage: 4mg/100ml, once per 28 days
     Dates: start: 20120508
  3. ZOMETA [Suspect]
     Dosage: 4mg/100ml, once per 28 days
     Dates: start: 20120926
  4. ZOMETA [Suspect]
     Dosage: 4mg/100ml, once per 28 days
     Dates: start: 20121024
  5. AVODART [Concomitant]
  6. TOLBUTAMIDE [Concomitant]
  7. METFORMIN [Concomitant]
  8. HYDROCHLOROTHIAZIDE [Concomitant]
  9. OXAZEPAM [Concomitant]
  10. TEMAZEPAM [Concomitant]

REACTIONS (3)
  - Death [Fatal]
  - Constipation [Not Recovered/Not Resolved]
  - Bone pain [Not Recovered/Not Resolved]
